FAERS Safety Report 7982742-4 (Version None)
Quarter: 2011Q4

REPORT INFORMATION
  Report Type: 
  Country: None (occurrence: None)
  Receive Date: 20111215
  Receipt Date: 20111027
  Transmission Date: 20120403
  Serious: Yes (Other)
  Sender: FDA-Public Use
  Company Number: US-ROCHE-802068

PATIENT
  Sex: Female

DRUGS (3)
  1. RIBAVIRIN [Suspect]
     Indication: HEPATITIS C
     Route: 065
  2. PEGASYS [Suspect]
     Indication: HEPATITIS C
     Route: 065
  3. TELAPREVIR [Suspect]
     Indication: HEPATITIS C
     Dosage: DRUG NAME: ^INCIVEK^
     Route: 065

REACTIONS (9)
  - SWOLLEN TONGUE [None]
  - DYSPNOEA [None]
  - DYSPHONIA [None]
  - ADVERSE DRUG REACTION [None]
  - DRY THROAT [None]
  - EYE PAIN [None]
  - HEADACHE [None]
  - CHOKING SENSATION [None]
  - PHARYNGEAL OEDEMA [None]
